FAERS Safety Report 9973803 (Version 1)
Quarter: 2014Q1

REPORT INFORMATION
  Report Type: Spontaneous
  Country: US (occurrence: US)
  Receive Date: 20140306
  Receipt Date: 20140306
  Transmission Date: 20141002
  Serious: Yes (Life-Threatening, Hospitalization)
  Sender: FDA-Public Use
  Company Number: US-TEVA-466099USA

PATIENT
  Sex: Male
  Weight: 77.18 kg

DRUGS (3)
  1. AZILECT [Suspect]
     Indication: PARKINSON^S DISEASE
     Dosage: 1
     Dates: start: 2012
  2. LEVODOPA [Suspect]
  3. SIMVASTATIN [Concomitant]

REACTIONS (7)
  - Prostatomegaly [Unknown]
  - Infection [Recovered/Resolved]
  - Tremor [Not Recovered/Not Resolved]
  - Chest pain [Not Recovered/Not Resolved]
  - Fatigue [Not Recovered/Not Resolved]
  - Dizziness [Recovered/Resolved]
  - Dyspnoea [Not Recovered/Not Resolved]
